FAERS Safety Report 15528960 (Version 1)
Quarter: 2018Q4

REPORT INFORMATION
  Report Type: Report from Study
  Country: US (occurrence: US)
  Receive Date: 20181018
  Receipt Date: 20181018
  Transmission Date: 20190205
  Serious: No
  Sender: FDA-Public Use
  Company Number: US-AMGEN-USASL2018128348

PATIENT
  Age: 55 Year
  Sex: Male

DRUGS (1)
  1. REPATHA [Suspect]
     Active Substance: EVOLOCUMAB
     Indication: HYPERLIPIDAEMIA
     Dosage: 140 MG, Q2WK
     Route: 058
     Dates: start: 20180912

REACTIONS (10)
  - Feeling abnormal [Unknown]
  - Flushing [Unknown]
  - Blood pressure increased [Unknown]
  - Fatigue [Unknown]
  - Sleep disorder due to a general medical condition [Unknown]
  - Influenza like illness [Unknown]
  - Micturition urgency [Unknown]
  - Nausea [Unknown]
  - Chills [Unknown]
  - Restlessness [Unknown]

NARRATIVE: CASE EVENT DATE: 201809
